FAERS Safety Report 7203669-1 (Version None)
Quarter: 2010Q4

REPORT INFORMATION
  Report Type: 
  Country: None (occurrence: None)
  Receive Date: 20101230
  Receipt Date: 20101216
  Transmission Date: 20110411
  Serious: Yes (Hospitalization, Other)
  Sender: FDA-Public Use
  Company Number: PHHY2010FR85776

PATIENT
  Sex: Male

DRUGS (9)
  1. SANDIMMUNE [Suspect]
     Dosage: 100 MG
     Dates: start: 20101110
  2. CORDARONE [Suspect]
     Dosage: 200 MG
     Dates: start: 20101121, end: 20101207
  3. CELLCEPT [Suspect]
     Dosage: 500 MG
     Dates: start: 20101110, end: 20101207
  4. TAHOR [Suspect]
     Dosage: 40 MG, QD
     Dates: start: 20101115, end: 20101205
  5. BACTRIM [Suspect]
     Dosage: UNK
     Dates: start: 20101124, end: 20101207
  6. LASIX [Suspect]
     Dosage: 500 MG
     Dates: start: 20101120, end: 20101207
  7. PREDNISONE [Suspect]
     Dosage: UNK
     Dates: start: 20101110
  8. CYMEVAN [Suspect]
     Dosage: UNK
     Dates: start: 20101122
  9. NEXIUM [Concomitant]
     Dosage: 40 MG, QD
     Dates: start: 20101115

REACTIONS (8)
  - ASCITES [None]
  - CHOLESTASIS [None]
  - CYTOLYTIC HEPATITIS [None]
  - CYTOMEGALOVIRUS INFECTION [None]
  - EPSTEIN-BARR VIRUS INFECTION [None]
  - HEPATIC ENZYME INCREASED [None]
  - HERPES SIMPLEX [None]
  - LOCALISED INTRAABDOMINAL FLUID COLLECTION [None]
